FAERS Safety Report 13010866 (Version 1)
Quarter: 2016Q4

REPORT INFORMATION
  Report Type: Spontaneous
  Country: US (occurrence: US)
  Receive Date: 20161208
  Receipt Date: 20161208
  Transmission Date: 20170207
  Serious: Yes (Hospitalization, Other)
  Sender: FDA-Public Use
  Company Number: US-MYLANLABS-2016M1053108

PATIENT

DRUGS (1)
  1. GLYCERYL TRINITRATE [Suspect]
     Active Substance: NITROGLYCERIN
     Indication: CHEST DISCOMFORT
     Dosage: 0.4MG (2 DOSES)
     Route: 065

REACTIONS (1)
  - Cardiac arrest [Recovered/Resolved]
